FAERS Safety Report 24451630 (Version 1)
Quarter: 2024Q4

REPORT INFORMATION
  Report Type: Spontaneous
  Country: CN (occurrence: CN)
  Receive Date: 20241017
  Receipt Date: 20241017
  Transmission Date: 20250115
  Serious: Yes (Life-Threatening)
  Sender: PFIZER
  Company Number: CN-PFIZER INC-PV202400133965

PATIENT
  Age: 73 Year
  Sex: Male

DRUGS (3)
  1. PACLITAXEL [Suspect]
     Active Substance: PACLITAXEL
     Indication: Oesophageal neoplasm
     Dosage: 220 MG, 1X/DAY
     Route: 041
     Dates: start: 20240924, end: 20240924
  2. SINTILIMAB [Suspect]
     Active Substance: SINTILIMAB
     Indication: Oesophageal neoplasm
     Dosage: 200 MG, 1X/DAY
     Route: 041
     Dates: start: 20240924, end: 20240924
  3. NEDAPLATIN [Suspect]
     Active Substance: NEDAPLATIN
     Indication: Oesophageal neoplasm
     Dosage: 30 MG, CYCLIC (1X/DAY, D1-3)
     Route: 041
     Dates: start: 20240924, end: 20240926

REACTIONS (1)
  - Platelet count decreased [Recovering/Resolving]

NARRATIVE: CASE EVENT DATE: 20240928
